FAERS Safety Report 4320587-7 (Version None)
Quarter: 2004Q1

REPORT INFORMATION
  Report Type: 
  Country: None (occurrence: None)
  Receive Date: 20040311
  Receipt Date: 20040226
  Transmission Date: 20041129
  Serious: Yes (Death)
  Sender: FDA-Public Use
  Company Number: 601071

PATIENT
  Age: 52 Year
  Sex: Male
  Weight: 50 kg

DRUGS (5)
  1. TISSEEL VH KIT [Suspect]
     Indication: HEPATECTOMY
     Dosage: 55 CC; ONCE; INTRAHEPTIC
     Route: 025
     Dates: start: 20031211, end: 20031211
  2. NOVOSEVEN [Suspect]
     Indication: HAEMORRHAGE
     Dosage: 9.6 MG; INTERMITTENT; INTRAVENOUS
     Route: 042
     Dates: start: 20031211, end: 20031211
  3. HEPARIN [Suspect]
     Indication: ANTICOAGULATION DRUG LEVEL
     Dosage: 160000 UNITS; INTERMITTENT; INTRAVENOUS
     Route: 042
     Dates: start: 20031211, end: 20031211
  4. AMICAR [Suspect]
     Indication: HAEMORRHAGE
     Dosage: 5 GM;ONCE;INTRAVENOUS
     Route: 042
     Dates: start: 20031211, end: 20031211
  5. BLOOD CELLS, PACKED HUMAN [Concomitant]

REACTIONS (15)
  - ANAPHYLACTIC REACTION [None]
  - BLOOD PRESSURE DECREASED [None]
  - CARDIAC ARREST [None]
  - CARDIAC DISORDER [None]
  - CARDIAC PROCEDURE COMPLICATION [None]
  - CATHETER SITE RELATED REACTION [None]
  - COAGULOPATHY [None]
  - ELECTROMECHANICAL DISSOCIATION [None]
  - HAEMORRHAGE [None]
  - HYPOTENSION [None]
  - INTRACARDIAC THROMBUS [None]
  - LACERATION [None]
  - MEDICAL DEVICE COMPLICATION [None]
  - MYOCARDIAL HAEMORRHAGE [None]
  - VENTRICULAR DYSFUNCTION [None]
